FAERS Safety Report 7237178-0 (Version None)
Quarter: 2011Q1

REPORT INFORMATION
  Report Type: 
  Country: None (occurrence: None)
  Receive Date: 20110121
  Receipt Date: 20110110
  Transmission Date: 20110831
  Serious: Yes (Other)
  Sender: FDA-Public Use
  Company Number: US-BAYER-2011-003577

PATIENT
  Sex: Female

DRUGS (2)
  1. BETASERON [Suspect]
     Dosage: UNK
  2. BETASERON [Suspect]
     Indication: MULTIPLE SCLEROSIS
     Dosage: 8 MIU, QOD
     Route: 058
     Dates: start: 20100701

REACTIONS (6)
  - PYREXIA [None]
  - ABDOMINAL MASS [None]
  - INJECTION SITE NECROSIS [None]
  - ABDOMINAL DISTENSION [None]
  - INJECTION SITE ULCER [None]
  - INJECTION SITE ABSCESS [None]
